FAERS Safety Report 14211175 (Version 1)
Quarter: 2017Q4

REPORT INFORMATION
  Report Type: Spontaneous
  Country: US (occurrence: None)
  Receive Date: 20171121
  Receipt Date: 20171121
  Transmission Date: 20180321
  Serious: Yes (Disabling)
  Sender: FDA-Public Use
  Company Number: None

PATIENT
  Age: 59 Year
  Sex: Female
  Weight: 111.13 kg

DRUGS (13)
  1. INJECTAFER [Suspect]
     Active Substance: FERRIC CARBOXYMALTOSE
     Indication: ANAEMIA
     Dosage: QUANITY - (BASED ON BODY WEIGHT)?FREQUENCY - 2 DOSES - 7 DAYS APART?ROUTE - IV SILUTION OVER 1 HOUR.
     Route: 042
     Dates: start: 20171013, end: 20171020
  2. METFORMIN [Concomitant]
     Active Substance: METFORMIN HYDROCHLORIDE
  3. PREDNISOLONE ACETATE. [Concomitant]
     Active Substance: PREDNISOLONE ACETATE
  4. PHOSNAK [Concomitant]
  5. GLEEVEC [Concomitant]
     Active Substance: IMATINIB MESYLATE
  6. ULORIC [Concomitant]
     Active Substance: FEBUXOSTAT
  7. VITAMIN C [Concomitant]
     Active Substance: ASCORBIC ACID
  8. BRIMONIDINE [Concomitant]
     Active Substance: BRIMONIDINE TARTRATE
  9. EYE DROPS [Concomitant]
     Active Substance: UNSPECIFIED INGREDIENT
  10. TIMOLOL. [Concomitant]
     Active Substance: TIMOLOL
  11. FOLBEE [Concomitant]
     Active Substance: CYANOCOBALAMIN\FOLIC ACID\PYRIDOXINE HYDROCHLORIDE
  12. MAGNESIUM OXIDE. [Concomitant]
     Active Substance: MAGNESIUM OXIDE
  13. VITAMIN D3 [Concomitant]
     Active Substance: CHOLECALCIFEROL

REACTIONS (4)
  - Protein total decreased [None]
  - Blood phosphorus decreased [None]
  - Blood calcium decreased [None]
  - Bone pain [None]

NARRATIVE: CASE EVENT DATE: 20171020
